FAERS Safety Report 22235530 (Version 1)
Quarter: 2023Q2

REPORT INFORMATION
  Report Type: Spontaneous
  Country: US (occurrence: None)
  Receive Date: 20230420
  Receipt Date: 20230420
  Transmission Date: 20230722
  Serious: Yes (Hospitalization, Other)
  Sender: FDA-Public Use
  Company Number: 2023A086879

PATIENT
  Age: 79 Year
  Sex: Male

DRUGS (2)
  1. CRESTOR [Suspect]
     Active Substance: ROSUVASTATIN CALCIUM
     Indication: Myocardial infarction
     Route: 048
     Dates: start: 20230226, end: 20230324
  2. CRESTOR [Suspect]
     Active Substance: ROSUVASTATIN CALCIUM
     Indication: Blood cholesterol abnormal
     Route: 048
     Dates: start: 20230226, end: 20230324

REACTIONS (4)
  - Nephropathy toxic [Unknown]
  - Diplegia [Unknown]
  - Quality of life decreased [Unknown]
  - Illness [Unknown]

NARRATIVE: CASE EVENT DATE: 20230324
